FAERS Safety Report 24403886 (Version 1)
Quarter: 2024Q4

REPORT INFORMATION
  Report Type: Spontaneous
  Country: US (occurrence: US)
  Receive Date: 20241007
  Receipt Date: 20241007
  Transmission Date: 20250114
  Serious: Yes (Other)
  Sender: MLV PHARMA
  Company Number: US-MPL-000060

PATIENT
  Age: 63 Year
  Sex: Male
  Weight: 162 kg

DRUGS (5)
  1. SPIRONOLACTONE [Suspect]
     Active Substance: SPIRONOLACTONE
     Indication: Cardiomyopathy
     Route: 065
  2. SACUBITRIL\VALSARTAN [Suspect]
     Active Substance: SACUBITRIL\VALSARTAN
     Indication: Cardiomyopathy
     Dosage: SACUBITRIL-VALSARTAN WAS TAKEN AT A DOSE OF 97/103 MG TWICE DAILY
     Route: 065
  3. TIRZEPATIDE [Suspect]
     Active Substance: TIRZEPATIDE
     Indication: Cardiomyopathy
     Dosage: TIRZEPATIDE WAS GIVEN INITIALLY AT 2.5 MG ONCE WEEKLY AND TITRATED BY 2.5 MG/?WEEK EVERY 4 WEEKS U
     Route: 065
  4. CARVEDILOL [Suspect]
     Active Substance: CARVEDILOL
     Indication: Cardiomyopathy
     Route: 065
  5. CARVEDILOL [Suspect]
     Active Substance: CARVEDILOL
     Indication: Cardiomyopathy
     Route: 065

REACTIONS (3)
  - Drug interaction [Unknown]
  - Hypotension [Recovering/Resolving]
  - Blood creatinine increased [Recovered/Resolved]
